FAERS Safety Report 4644548-3 (Version None)
Quarter: 2005Q2

REPORT INFORMATION
  Report Type: 
  Country: None (occurrence: None)
  Receive Date: 20050321
  Receipt Date: 20041201
  Transmission Date: 20051028
  Serious: No
  Sender: FDA-Public Use
  Company Number: 04P-163-0281939-00

PATIENT
  Age: 41 Year
  Sex: Female
  Weight: 77.1115 kg

DRUGS (3)
  1. HUMIRA [Suspect]
     Indication: RHEUMATOID ARTHRITIS
     Dosage: 40 MG, 1 IN 1 WK, SUBCUTANEOUS;  1 IN 1 WK
     Route: 058
     Dates: start: 20030101, end: 20040301
  2. HUMIRA [Suspect]
     Indication: RHEUMATOID ARTHRITIS
     Dosage: 40 MG, 1 IN 1 WK, SUBCUTANEOUS;  1 IN 1 WK
     Route: 058
     Dates: start: 20040301
  3. METHOTREXATE [Concomitant]

REACTIONS (2)
  - NASOPHARYNGITIS [None]
  - THROAT IRRITATION [None]
